FAERS Safety Report 4626991-1 (Version None)
Quarter: 2005Q1

REPORT INFORMATION
  Report Type: 
  Country: None (occurrence: None)
  Receive Date: 20050331
  Receipt Date: 20050321
  Transmission Date: 20050727
  Serious: Yes (Hospitalization)
  Sender: FDA-Public Use
  Company Number: US-2005-000005

PATIENT
  Age: 40 Year
  Sex: Female

DRUGS (1)
  1. CLIMARA [Suspect]
     Dosage: CONT, TRANSDERMAL
     Route: 062
     Dates: end: 20050103

REACTIONS (4)
  - GOITRE [None]
  - OESOPHAGEAL DISORDER [None]
  - TRACHEAL DISORDER [None]
  - WHITE BLOOD CELL COUNT INCREASED [None]
